FAERS Safety Report 6300797-X (Version None)
Quarter: 2009Q3

REPORT INFORMATION
  Report Type: 
  Country: None (occurrence: None)
  Receive Date: 20090807
  Receipt Date: 20090804
  Transmission Date: 20100115
  Serious: Yes (Death, Other)
  Sender: FDA-Public Use
  Company Number: IT-BRISTOL-MYERS SQUIBB COMPANY-14723365

PATIENT
  Age: 72 Year
  Sex: Female

DRUGS (18)
  1. COUMADIN [Suspect]
     Route: 048
     Dates: start: 20090501, end: 20090612
  2. ZOLOFT [Suspect]
     Route: 048
     Dates: start: 20090501, end: 20090612
  3. PANTOPRAZOLE SODIUM [Concomitant]
     Route: 048
  4. EUTIROX [Concomitant]
     Route: 048
  5. COVERSYL [Concomitant]
     Route: 048
  6. TENORETIC 100 [Concomitant]
     Route: 048
  7. TAVOR [Concomitant]
     Dosage: TAVOR 1 MG TABS
     Route: 048
  8. LEVOTHYROXINE SODIUM [Concomitant]
     Dosage: 1 TAB; 8 HR
  9. ESOMEPRAZOLE [Concomitant]
     Dosage: 1 TABS; 8 HR
  10. LACTULOSE [Concomitant]
     Dosage: 1 DF = 1 SPOON
  11. CANRENONE [Concomitant]
     Dosage: 1 TAB; 12 HR
  12. URSODIOL [Concomitant]
     Dosage: 1 TAB X 2; 8-20HR
  13. METHYLPREDNISOLONE [Concomitant]
     Dosage: 1 VIAL * 2
     Route: 042
  14. ALBUMIN (HUMAN) [Concomitant]
     Dosage: 1 DF = 1 VIAL
  15. VITAMIN K [Concomitant]
     Dosage: 1 DF = 1 VIAL
  16. LEVOFLOXACIN [Concomitant]
     Dosage: 1 VIAL ; DA 22/07/2009
  17. PENTOXIFYLLINE [Concomitant]
     Dosage: 1 DF = 1 VIAL
     Route: 042
  18. INSULIN [Concomitant]
     Dosage: QUICK INSULIN SEC DEX

REACTIONS (4)
  - CHOLANGITIS [None]
  - HEPATIC FAILURE [None]
  - LIVER DISORDER [None]
  - THROMBOCYTOPENIA [None]
